FAERS Safety Report 6356597-8 (Version None)
Quarter: 2009Q3

REPORT INFORMATION
  Report Type: 
  Country: None (occurrence: None)
  Receive Date: 20090911
  Receipt Date: 20090911
  Transmission Date: 20100115
  Serious: Yes (Other)
  Sender: FDA-Public Use
  Company Number: None

PATIENT
  Weight: 66.2252 kg

DRUGS (6)
  1. ERLOTINIB 150MG GENENTECH [Suspect]
     Indication: SQUAMOUS CELL CARCINOMA OF SKIN
     Dosage: 150 MG DAILY P.O.
     Route: 048
     Dates: start: 20090630, end: 20090811
  2. CALTRATE [Concomitant]
  3. DEXAMETHASONE 4MG TAB [Suspect]
  4. FISH OIL/VITAMIN [Concomitant]
  5. FLOMAX/TRIAMCINOLONE TOPICAL CREAM [Concomitant]
  6. MULTIVITAMIN/SAW PALMETTO [Concomitant]

REACTIONS (2)
  - LOSS OF CONSCIOUSNESS [None]
  - MYOCARDIAL INFARCTION [None]
